FAERS Safety Report 13355252 (Version 1)
Quarter: 2017Q1

REPORT INFORMATION
  Report Type: Spontaneous
  Country: US (occurrence: US)
  Receive Date: 20170321
  Receipt Date: 20170321
  Transmission Date: 20170429
  Serious: No
  Sender: FDA-Public Use
  Company Number: US-BAUSCH-BL-2016-032620

PATIENT
  Age: 67 Year
  Sex: Female

DRUGS (4)
  1. LOTREL [Concomitant]
     Active Substance: AMLODIPINE BESYLATE\BENAZEPRIL HYDROCHLORIDE
     Indication: HYPERTENSION
     Route: 048
  2. RENOVA [Suspect]
     Active Substance: TRETINOIN
     Indication: SKIN WRINKLING
     Dosage: APPLIED IT TO THE FACE EXTERNALLY AT BEDTIME OCCASIONALLY
     Route: 061
     Dates: start: 201601
  3. RENOVA [Suspect]
     Active Substance: TRETINOIN
     Indication: SKIN EXFOLIATION
  4. RESVERATROL [Concomitant]
     Active Substance: RESVERATROL
     Indication: PRODUCT USED FOR UNKNOWN INDICATION
     Route: 048
     Dates: start: 2015

REACTIONS (2)
  - Expired product administered [Unknown]
  - No adverse event [Unknown]
